FAERS Safety Report 18300408 (Version 1)
Quarter: 2020Q3

REPORT INFORMATION
  Report Type: Spontaneous
  Country: US (occurrence: US)
  Receive Date: 20200922
  Receipt Date: 20200922
  Transmission Date: 20201103
  Serious: Yes (Hospitalization)
  Sender: FDA-Public Use
  Company Number: None

PATIENT
  Age: 49 Year
  Sex: Male

DRUGS (17)
  1. REPATHA [Suspect]
     Active Substance: EVOLOCUMAB
     Indication: HYPERLIPIDAEMIA
     Route: 058
     Dates: start: 20180622
  2. AMLODIPINE [Concomitant]
     Active Substance: AMLODIPINE BESYLATE
  3. LOSARTAN POT [Concomitant]
     Active Substance: LOSARTAN POTASSIUM
  4. QUETIAPINE. [Concomitant]
     Active Substance: QUETIAPINE
  5. TESTOST CYP [Concomitant]
     Active Substance: TESTOSTERONE CYPIONATE
  6. AMOXICILLIN. [Concomitant]
     Active Substance: AMOXICILLIN
  7. COLESTIPOL [Concomitant]
     Active Substance: COLESTIPOL
  8. XIFAXAN [Concomitant]
     Active Substance: RIFAXIMIN
  9. APAP/CODEINE [Concomitant]
     Active Substance: ACETAMINOPHEN\CODEINE PHOSPHATE
  10. CHLORHEX GLU [Concomitant]
  11. NITROGLYCRN [Concomitant]
  12. ALPRAZOLAM. [Concomitant]
     Active Substance: ALPRAZOLAM
  13. IBUPROFEN. [Concomitant]
     Active Substance: IBUPROFEN
  14. AZITHROMYCIN ANHYDROUS. [Concomitant]
     Active Substance: AZITHROMYCIN ANHYDROUS
  15. CLOPIDOGREL [Concomitant]
     Active Substance: CLOPIDOGREL BISULFATE
  16. ALOSETRON [Concomitant]
     Active Substance: ALOSETRON
  17. ZOLPIDEM [Concomitant]
     Active Substance: ZOLPIDEM TARTRATE

REACTIONS (1)
  - Appendicectomy [None]

NARRATIVE: CASE EVENT DATE: 20200805
